FAERS Safety Report 25256395 (Version 1)
Quarter: 2025Q2

REPORT INFORMATION
  Report Type: Spontaneous
  Country: US (occurrence: US)
  Receive Date: 20250430
  Receipt Date: 20250430
  Transmission Date: 20250716
  Serious: Yes (Hospitalization)
  Sender: DOMPE FARMACEUTICI
  Company Number: US-FARMAPROD-202503-0940

PATIENT
  Sex: Male

DRUGS (26)
  1. OXERVATE [Suspect]
     Active Substance: CENEGERMIN-BKBJ
     Indication: Neurotrophic keratopathy
     Route: 047
     Dates: start: 20250310
  2. OXERVATE [Suspect]
     Active Substance: CENEGERMIN-BKBJ
  3. OFLOXACIN [Concomitant]
     Active Substance: OFLOXACIN
  4. PRED FORTE [Concomitant]
     Active Substance: PREDNISOLONE ACETATE
  5. VITAMIN D3 [Concomitant]
     Active Substance: CHOLECALCIFEROL
  6. MELATONIN [Concomitant]
     Active Substance: MELATONIN
  7. ARIPIPRAZOLE [Concomitant]
     Active Substance: ARIPIPRAZOLE
  8. DULOXETINE HYDROCHLORIDE [Concomitant]
     Active Substance: DULOXETINE HYDROCHLORIDE
  9. TESTOSTERONE CYPIONATE [Concomitant]
     Active Substance: TESTOSTERONE CYPIONATE
  10. TAMSULOSIN HYDROCHLORIDE [Concomitant]
     Active Substance: TAMSULOSIN HYDROCHLORIDE
  11. ENVARSUS XR [Concomitant]
     Active Substance: TACROLIMUS
  12. MYCOPHENOLATE MOFETIL [Concomitant]
     Active Substance: MYCOPHENOLATE MOFETIL
  13. PROPRANOLOL HYDROCHLORIDE [Concomitant]
     Active Substance: PROPRANOLOL HYDROCHLORIDE
  14. LEVOTHYROXINE SODIUM [Concomitant]
     Active Substance: LEVOTHYROXINE SODIUM
  15. LIOTHYRONINE SODIUM [Concomitant]
     Active Substance: LIOTHYRONINE SODIUM
  16. SENNA [Concomitant]
     Active Substance: SENNOSIDES
  17. ASPIRIN [Concomitant]
     Active Substance: ASPIRIN
  18. CETIRIZINE HCL [Concomitant]
     Active Substance: CETIRIZINE HYDROCHLORIDE
  19. BUSPIRONE HCL [Concomitant]
     Active Substance: BUSPIRONE HYDROCHLORIDE
  20. PRIMIDONE [Concomitant]
     Active Substance: PRIMIDONE
  21. MELATONIN [Concomitant]
     Active Substance: MELATONIN
  22. WEGOVY [Concomitant]
     Active Substance: SEMAGLUTIDE
  23. PRAVASTATIN SODIUM [Concomitant]
     Active Substance: PRAVASTATIN SODIUM
  24. LEVOTHYROXINE SODIUM [Concomitant]
     Active Substance: LEVOTHYROXINE SODIUM
  25. MAPAP [Concomitant]
     Active Substance: ACETAMINOPHEN
  26. OMEPRAZOLE [Concomitant]
     Active Substance: OMEPRAZOLE

REACTIONS (2)
  - Hospitalisation [Unknown]
  - Conjunctivitis [Recovered/Resolved]
